FAERS Safety Report 8925933 (Version 3)
Quarter: 2013Q2

REPORT INFORMATION
  Report Type: Spontaneous
  Country: US (occurrence: US)
  Receive Date: 20121126
  Receipt Date: 20130513
  Transmission Date: 20140414
  Serious: Yes (Life-Threatening, Hospitalization, Other)
  Sender: FDA-Public Use
  Company Number: PHEH2012US022746

PATIENT
  Age: 31 Year
  Sex: Female
  Weight: 100.68 kg

DRUGS (2)
  1. GILENYA [Suspect]
     Indication: MULTIPLE SCLEROSIS
     Dosage: 0.5 MG, QD
     Route: 048
     Dates: start: 201111
  2. GILENYA [Suspect]
     Dosage: 0.5 MG, QD
     Route: 048

REACTIONS (5)
  - Volvulus [Recovered/Resolved]
  - Intestinal obstruction [Recovered/Resolved]
  - Abdominal pain [Unknown]
  - Progressive multiple sclerosis [Unknown]
  - Multiple sclerosis relapse [Recovering/Resolving]
